FAERS Safety Report 4969559-X (Version None)
Quarter: 2006Q2

REPORT INFORMATION
  Report Type: 
  Country: None (occurrence: None)
  Receive Date: 20060406
  Receipt Date: 20060328
  Transmission Date: 20061013
  Serious: Yes (Other)
  Sender: FDA-Public Use
  Company Number: 2006-03-2029

PATIENT

DRUGS (3)
  1. INTEGRILIN [Suspect]
     Indication: PERIPHERAL VASCULAR DISORDER
     Dosage: 180 MCG/KG INTRAVENOUS; 2 MCG/KG/MIN INTRAVENOUS
     Route: 042
  2. ASPIRIN [Concomitant]
  3. HEPARIN [Concomitant]

REACTIONS (2)
  - COMPARTMENT SYNDROME [None]
  - POST PROCEDURAL COMPLICATION [None]
